FAERS Safety Report 24463206 (Version 1)
Quarter: 2024Q4

REPORT INFORMATION
  Report Type: Spontaneous
  Country: BE (occurrence: BE)
  Receive Date: 20241018
  Receipt Date: 20241018
  Transmission Date: 20250115
  Serious: Yes (Other)
  Sender: INCYTE
  Company Number: BE-INCYTE CORPORATION-2024IN009130

PATIENT

DRUGS (2)
  1. TAFASITAMAB [Suspect]
     Active Substance: TAFASITAMAB
     Dosage: 600 MILLIGRAM, DAYS 1,4,8,15, AND 22.
     Route: 042
     Dates: start: 20240610
  2. LENALIDOMIDE [Concomitant]
     Active Substance: LENALIDOMIDE
     Dosage: 10 MILLIGRAM, QD
     Route: 048
     Dates: start: 20240610

REACTIONS (3)
  - Lymphoma [Unknown]
  - Leukopenia [Unknown]
  - Neutropenia [Not Recovered/Not Resolved]
